FAERS Safety Report 9158258 (Version 2)
Quarter: 2013Q2

REPORT INFORMATION
  Report Type: Spontaneous
  Country: IT (occurrence: IT)
  Receive Date: 20130312
  Receipt Date: 20130416
  Transmission Date: 20140414
  Serious: Yes (Hospitalization)
  Sender: FDA-Public Use
  Company Number: IT-BRISTOL-MYERS SQUIBB COMPANY-17439142

PATIENT
  Age: 77 Year
  Sex: Female

DRUGS (7)
  1. COUMADIN TABS 5 MG [Suspect]
     Indication: ATRIAL FIBRILLATION
     Dosage: 1 DF: 1UNIT
     Route: 048
     Dates: start: 20100101, end: 20130111
  2. ACETYLSALICYLIC ACID [Suspect]
     Indication: MYOCARDIAL ISCHAEMIA
     Route: 048
     Dates: start: 20100101, end: 20130111
  3. PANTOPRAZOLE SODIUM [Concomitant]
     Route: 048
  4. DIBASE [Concomitant]
     Dosage: 1DF:10000 IU/ML ORAL DROPS SOLUTION
     Route: 048
  5. TACHIDOL [Concomitant]
     Dosage: 1DF: 500/30 MG TABLETS DOSAGE/1/UNIT
     Route: 048
  6. CORDARONE [Concomitant]
     Dosage: DOSAGE/1/UNIT
     Route: 048
  7. LASIX [Concomitant]
     Dosage: DOSAGE/2/UNIT
     Route: 049

REACTIONS (1)
  - Anaemia [Recovered/Resolved]
